FAERS Safety Report 7546272-6 (Version None)
Quarter: 2011Q2

REPORT INFORMATION
  Report Type: 
  Country: None (occurrence: None)
  Receive Date: 20110607
  Receipt Date: 20110525
  Transmission Date: 20111010
  Serious: Yes (Hospitalization)
  Sender: FDA-Public Use
  Company Number: 1000021413

PATIENT
  Age: 39 Year
  Sex: Male
  Weight: 87 kg

DRUGS (2)
  1. ESCITALOPRAM [Suspect]
     Indication: DEPRESSION
     Dosage: ORAL
     Route: 048
     Dates: start: 20090525
  2. VIANI (FLUTICASONE, SALMETEROL) (FLUTICASONE, SALMETEROL) [Concomitant]

REACTIONS (1)
  - CONVULSION [None]
